FAERS Safety Report 6818244-8 (Version None)
Quarter: 2010Q3

REPORT INFORMATION
  Report Type: 
  Country: None (occurrence: None)
  Receive Date: 20100706
  Receipt Date: 20070906
  Transmission Date: 20110219
  Serious: No
  Sender: FDA-Public Use
  Company Number: US-PFIZER INC-2007017352

PATIENT
  Sex: Female
  Weight: 48.99 kg

DRUGS (10)
  1. AZITHROMYCIN [Suspect]
     Indication: DENTAL FISTULA
     Dates: start: 20070212
  2. PREDNISONE [Concomitant]
  3. HYDROCHLOROTHIAZIDE [Concomitant]
  4. ATENOLOL [Concomitant]
  5. EVISTA [Concomitant]
  6. VITAMIN C [Concomitant]
  7. VITAMIN E [Concomitant]
  8. CALCIUM CARBONATE [Concomitant]
  9. LECITHIN [Concomitant]
  10. ACIDOPHILUS [Concomitant]

REACTIONS (4)
  - FUNGAL INFECTION [None]
  - HAEMOGLOBIN DECREASED [None]
  - RED BLOOD CELL ABNORMALITY [None]
  - TONGUE DISCOLOURATION [None]
